FAERS Safety Report 11918890 (Version 2)
Quarter: 2016Q3

REPORT INFORMATION
  Report Type: Spontaneous
  Country: US (occurrence: US)
  Receive Date: 20160115
  Receipt Date: 20160907
  Transmission Date: 20161109
  Serious: Yes (Other)
  Sender: FDA-Public Use
  Company Number: US-JNJFOC-20151204988

PATIENT
  Age: 39 Year
  Sex: Female

DRUGS (13)
  1. LEVOFLOXACIN. [Suspect]
     Active Substance: LEVOFLOXACIN
     Indication: PYREXIA
     Route: 065
     Dates: start: 20040326, end: 20040329
  2. LEVOFLOXACIN. [Suspect]
     Active Substance: LEVOFLOXACIN
     Indication: PNEUMONIA
     Route: 065
     Dates: start: 20060202, end: 20060204
  3. LEVOFLOXACIN. [Suspect]
     Active Substance: LEVOFLOXACIN
     Indication: PNEUMONIA
     Route: 065
     Dates: start: 20060208
  4. LEVOFLOXACIN. [Suspect]
     Active Substance: LEVOFLOXACIN
     Indication: PYREXIA
     Route: 065
     Dates: start: 20060202, end: 20060204
  5. LEVAQUIN [Suspect]
     Active Substance: LEVOFLOXACIN
     Indication: PRODUCT USED FOR UNKNOWN INDICATION
     Route: 048
  6. LEVOFLOXACIN. [Suspect]
     Active Substance: LEVOFLOXACIN
     Indication: PYREXIA
     Route: 065
     Dates: start: 20060208
  7. LEVOFLOXACIN. [Suspect]
     Active Substance: LEVOFLOXACIN
     Indication: PNEUMONIA
     Route: 065
     Dates: start: 20061221
  8. LEVOFLOXACIN. [Suspect]
     Active Substance: LEVOFLOXACIN
     Indication: PNEUMONIA
     Route: 065
     Dates: start: 20040326, end: 20040329
  9. LEVOFLOXACIN. [Suspect]
     Active Substance: LEVOFLOXACIN
     Indication: COUGH
     Route: 065
     Dates: start: 20040326, end: 20040329
  10. LEVOFLOXACIN. [Suspect]
     Active Substance: LEVOFLOXACIN
     Indication: COUGH
     Route: 065
     Dates: start: 20061221
  11. LEVOFLOXACIN. [Suspect]
     Active Substance: LEVOFLOXACIN
     Indication: PYREXIA
     Route: 065
     Dates: start: 20061221
  12. LEVOFLOXACIN. [Suspect]
     Active Substance: LEVOFLOXACIN
     Indication: COUGH
     Route: 065
     Dates: start: 20060208
  13. LEVOFLOXACIN. [Suspect]
     Active Substance: LEVOFLOXACIN
     Indication: COUGH
     Route: 065
     Dates: start: 20060202, end: 20060204

REACTIONS (1)
  - Neuropathy peripheral [Not Recovered/Not Resolved]

NARRATIVE: CASE EVENT DATE: 200603
